FAERS Safety Report 21450254 (Version 4)
Quarter: 2022Q4

REPORT INFORMATION
  Report Type: Spontaneous
  Country: CA (occurrence: CA)
  Receive Date: 20221013
  Receipt Date: 20221116
  Transmission Date: 20230113
  Serious: Yes (Hospitalization, Other)
  Sender: FDA-Public Use
  Company Number: CA-CELLTRION INC.-2022CA016498

PATIENT

DRUGS (3)
  1. INFLECTRA [Suspect]
     Active Substance: INFLIXIMAB-DYYB
     Indication: Crohn^s disease
     Dosage: 1300 MG, EVERY 4 WEEKS
     Route: 042
     Dates: start: 20200707, end: 20210717
  2. INFLECTRA [Suspect]
     Active Substance: INFLIXIMAB-DYYB
     Dosage: 1300 MG, AT 0,2,6 WEEKS, THEN EVERY 4 WEEKS, DISCONTINUED
     Route: 042
     Dates: start: 20211004, end: 20220824
  3. INFLECTRA [Suspect]
     Active Substance: INFLIXIMAB-DYYB
     Dosage: 1300 MG, AT 0,2,6 WEEKS, THEN EVERY 4 WEEKS
     Route: 042
     Dates: start: 20220824

REACTIONS (2)
  - Infection [Recovering/Resolving]
  - Off label use [Unknown]
